FAERS Safety Report 16536421 (Version 1)
Quarter: 2019Q3

REPORT INFORMATION
  Report Type: Spontaneous
  Country: JP (occurrence: JP)
  Receive Date: 20190706
  Receipt Date: 20190706
  Transmission Date: 20191004
  Serious: Yes (Other)
  Sender: FDA-Public Use
  Company Number: JP-ACCORD-136708

PATIENT
  Age: 47 Year
  Sex: Female

DRUGS (9)
  1. SOLIFENACIN/SOLIFENACIN SUCCINATE [Concomitant]
     Indication: HYPERTONIC BLADDER
  2. CLOMIPRAMINE [Concomitant]
     Active Substance: CLOMIPRAMINE
     Indication: MAJOR DEPRESSION
     Dosage: MAXIMAL THERAPEUTIC DOSES
  3. IMIPRAMINE [Concomitant]
     Active Substance: IMIPRAMINE
     Indication: MAJOR DEPRESSION
     Dosage: MAXIMAL THERAPEUTIC DOSES
  4. MIRTAZAPINE. [Concomitant]
     Active Substance: MIRTAZAPINE
     Indication: MAJOR DEPRESSION
     Dosage: MAXIMAL THERAPEUTIC DOSES
  5. NORTRIPTYLINE [Concomitant]
     Active Substance: NORTRIPTYLINE
     Indication: MAJOR DEPRESSION
     Dosage: MAXIMAL THERAPEUTIC DOSES
  6. BIPERIDEN [Concomitant]
     Active Substance: BIPERIDEN
     Indication: RAPID EYE MOVEMENT SLEEP BEHAVIOUR DISORDER
  7. DONEPEZIL/DONEPEZIL HYDROCHLORIDE [Suspect]
     Active Substance: DONEPEZIL HYDROCHLORIDE
     Indication: ROSS SYNDROME
  8. ESCITALOPRAM [Concomitant]
     Active Substance: ESCITALOPRAM OXALATE
     Indication: MAJOR DEPRESSION
     Dosage: MAXIMAL THERAPEUTIC DOSES
  9. DULOXETINE. [Concomitant]
     Active Substance: DULOXETINE
     Indication: MAJOR DEPRESSION
     Dosage: MAXIMAL THERAPEUTIC DOSES

REACTIONS (1)
  - Hypotonia [Recovering/Resolving]
